FAERS Safety Report 5236593-4 (Version None)
Quarter: 2007Q1

REPORT INFORMATION
  Report Type: 
  Country: None (occurrence: None)
  Receive Date: 20070208
  Receipt Date: 20070126
  Transmission Date: 20070707
  Serious: Yes (Death)
  Sender: FDA-Public Use
  Company Number: T200700094

PATIENT
  Age: 57 Year
  Sex: Male

DRUGS (2)
  1. OPTIRAY 350 [Suspect]
     Indication: COMPUTERISED TOMOGRAM
     Dosage: 100 ML, SINGLE; INTRAVENOUS
     Route: 042
     Dates: start: 20070125, end: 20070125
  2. ASACOL [Concomitant]

REACTIONS (10)
  - CARDIO-RESPIRATORY ARREST [None]
  - COMMUNICATION DISORDER [None]
  - CYANOSIS [None]
  - MALAISE [None]
  - NAUSEA [None]
  - PRURITUS [None]
  - RESTLESSNESS [None]
  - RETCHING [None]
  - SNEEZING [None]
  - TREMOR [None]
